FAERS Safety Report 12876311 (Version 1)
Quarter: 2016Q4

REPORT INFORMATION
  Report Type: Spontaneous
  Country: US (occurrence: US)
  Receive Date: 20161024
  Receipt Date: 20161024
  Transmission Date: 20170207
  Serious: No
  Sender: FDA-Public Use
  Company Number: US-BAYER-2016-198790

PATIENT
  Age: 80 Year
  Sex: Female
  Weight: 56.69 kg

DRUGS (3)
  1. MIRALAX [Suspect]
     Active Substance: POLYETHYLENE GLYCOL 3350
     Indication: CONSTIPATION
  2. MIRAFIBER SUGAR FREE ORANGE POWDER [Suspect]
     Active Substance: METHYLCELLULOSES
     Indication: GASTROINTESTINAL DISORDER
     Dosage: 1 DF(1 HEAPING TABLESPOON), QD
     Route: 048
     Dates: start: 201609, end: 201610
  3. MIRALAX [Suspect]
     Active Substance: POLYETHYLENE GLYCOL 3350
     Indication: GASTROINTESTINAL DISORDER
     Dosage: 1 DF, QD
     Route: 048

REACTIONS (3)
  - Product use issue [Unknown]
  - Retching [Unknown]
  - Dysphagia [Unknown]
